FAERS Safety Report 7061981-3 (Version None)
Quarter: 2010Q4

REPORT INFORMATION
  Report Type: 
  Country: None (occurrence: None)
  Receive Date: 20101026
  Receipt Date: 20100913
  Transmission Date: 20110411
  Serious: Yes (Death, Hospitalization, Other)
  Sender: FDA-Public Use
  Company Number: US-BAXTER-2009BH019146

PATIENT
  Age: 66 Year
  Sex: Female
  Weight: 86 kg

DRUGS (97)
  1. HEPARIN SODIUM INJECTION [Suspect]
     Indication: PERITONEAL DIALYSIS
     Route: 042
     Dates: start: 20070920, end: 20071023
  2. HEPARIN SODIUM INJECTION [Suspect]
     Indication: HAEMODIALYSIS
     Route: 042
     Dates: start: 20070920, end: 20071023
  3. HEPARIN SODIUM INJECTION [Suspect]
     Indication: REMOVAL OF AMBULATORY PERITONEAL CATHETER
     Route: 042
     Dates: start: 20070920, end: 20071023
  4. HEPARIN SODIUM INJECTION [Suspect]
     Indication: REPLACEMENT OF AMBULATORY PERITONEAL CATHETER
     Route: 042
     Dates: start: 20070920, end: 20071023
  5. HEPARIN SODIUM INJECTION [Suspect]
     Indication: INTRAVENOUS CATHETER MANAGEMENT
     Route: 042
     Dates: start: 20070920, end: 20071023
  6. HEPARIN SODIUM INJECTION [Suspect]
     Indication: THROMBOSIS PROPHYLAXIS
     Route: 042
     Dates: start: 20070920, end: 20071023
  7. HEPARIN SODIUM INJECTION [Suspect]
     Route: 042
     Dates: start: 20071024, end: 20071101
  8. HEPARIN SODIUM INJECTION [Suspect]
     Route: 042
     Dates: start: 20071024, end: 20071101
  9. HEPARIN SODIUM INJECTION [Suspect]
     Route: 042
     Dates: start: 20071024, end: 20071101
  10. HEPARIN SODIUM INJECTION [Suspect]
     Route: 042
     Dates: start: 20071024, end: 20071101
  11. HEPARIN SODIUM INJECTION [Suspect]
     Route: 042
     Dates: start: 20071024, end: 20071101
  12. HEPARIN SODIUM INJECTION [Suspect]
     Route: 042
     Dates: start: 20071024, end: 20071101
  13. HEPARIN SODIUM INJECTION [Suspect]
     Route: 033
     Dates: start: 20071001, end: 20071001
  14. HEPARIN SODIUM INJECTION [Suspect]
     Route: 033
     Dates: start: 20071001, end: 20071001
  15. HEPARIN SODIUM INJECTION [Suspect]
     Route: 033
     Dates: start: 20071001, end: 20071001
  16. HEPARIN SODIUM INJECTION [Suspect]
     Route: 033
     Dates: start: 20071001, end: 20071001
  17. HEPARIN SODIUM INJECTION [Suspect]
     Route: 033
     Dates: start: 20071001, end: 20071001
  18. HEPARIN SODIUM INJECTION [Suspect]
     Route: 033
     Dates: start: 20071001, end: 20071001
  19. HEPARIN SODIUM INJECTION [Suspect]
     Route: 042
     Dates: start: 20070919, end: 20070919
  20. HEPARIN SODIUM INJECTION [Suspect]
     Route: 042
     Dates: start: 20070919, end: 20070919
  21. HEPARIN SODIUM INJECTION [Suspect]
     Route: 042
     Dates: start: 20070919, end: 20070919
  22. HEPARIN SODIUM INJECTION [Suspect]
     Route: 042
     Dates: start: 20070919, end: 20070919
  23. HEPARIN SODIUM INJECTION [Suspect]
     Route: 042
     Dates: start: 20070919, end: 20070919
  24. HEPARIN SODIUM INJECTION [Suspect]
     Route: 042
     Dates: start: 20070919, end: 20070919
  25. HEPARIN SODIUM INJECTION [Suspect]
     Route: 042
     Dates: start: 20070923, end: 20070923
  26. HEPARIN SODIUM INJECTION [Suspect]
     Route: 042
     Dates: start: 20070923, end: 20070923
  27. HEPARIN SODIUM INJECTION [Suspect]
     Route: 042
     Dates: start: 20070923, end: 20070923
  28. HEPARIN SODIUM INJECTION [Suspect]
     Route: 042
     Dates: start: 20070923, end: 20070923
  29. HEPARIN SODIUM INJECTION [Suspect]
     Route: 042
     Dates: start: 20070923, end: 20070923
  30. HEPARIN SODIUM INJECTION [Suspect]
     Route: 042
     Dates: start: 20070923, end: 20070923
  31. HEPARIN SODIUM INJECTION [Suspect]
     Route: 010
     Dates: start: 20071120, end: 20071201
  32. HEPARIN SODIUM INJECTION [Suspect]
     Route: 010
     Dates: start: 20071120, end: 20071201
  33. HEPARIN SODIUM INJECTION [Suspect]
     Route: 010
     Dates: start: 20071120, end: 20071201
  34. HEPARIN SODIUM INJECTION [Suspect]
     Route: 010
     Dates: start: 20071120, end: 20071201
  35. HEPARIN SODIUM INJECTION [Suspect]
     Route: 010
     Dates: start: 20071120, end: 20071201
  36. HEPARIN SODIUM INJECTION [Suspect]
     Route: 010
     Dates: start: 20071120, end: 20071201
  37. HEPARIN SODIUM INJECTION [Suspect]
     Route: 010
     Dates: start: 20071024, end: 20071106
  38. HEPARIN SODIUM INJECTION [Suspect]
     Route: 010
     Dates: start: 20071024, end: 20071106
  39. HEPARIN SODIUM INJECTION [Suspect]
     Route: 010
     Dates: start: 20071024, end: 20071106
  40. HEPARIN SODIUM INJECTION [Suspect]
     Route: 010
     Dates: start: 20071024, end: 20071106
  41. HEPARIN SODIUM INJECTION [Suspect]
     Route: 010
     Dates: start: 20071024, end: 20071106
  42. HEPARIN SODIUM INJECTION [Suspect]
     Route: 010
     Dates: start: 20071024, end: 20071106
  43. HEPARIN SODIUM INJECTION [Suspect]
     Route: 058
     Dates: start: 20071024, end: 20071102
  44. HEPARIN SODIUM INJECTION [Suspect]
     Route: 058
     Dates: start: 20071024, end: 20071102
  45. HEPARIN SODIUM INJECTION [Suspect]
     Route: 058
     Dates: start: 20071024, end: 20071102
  46. HEPARIN SODIUM INJECTION [Suspect]
     Route: 058
     Dates: start: 20071024, end: 20071102
  47. HEPARIN SODIUM INJECTION [Suspect]
     Route: 058
     Dates: start: 20071024, end: 20071102
  48. HEPARIN SODIUM INJECTION [Suspect]
     Route: 058
     Dates: start: 20071024, end: 20071102
  49. HEPARIN SODIUM INJECTION [Suspect]
     Route: 033
     Dates: start: 20071023, end: 20071023
  50. HEPARIN SODIUM INJECTION [Suspect]
     Route: 033
     Dates: start: 20071023, end: 20071023
  51. HEPARIN SODIUM INJECTION [Suspect]
     Route: 033
     Dates: start: 20071023, end: 20071023
  52. HEPARIN SODIUM INJECTION [Suspect]
     Route: 033
     Dates: start: 20071023, end: 20071023
  53. HEPARIN SODIUM INJECTION [Suspect]
     Route: 033
     Dates: start: 20071023, end: 20071023
  54. HEPARIN SODIUM INJECTION [Suspect]
     Route: 033
     Dates: start: 20071023, end: 20071023
  55. HEPARIN SODIUM INJECTION [Suspect]
     Route: 058
     Dates: start: 20071031, end: 20071031
  56. HEPARIN SODIUM INJECTION [Suspect]
     Route: 058
     Dates: start: 20071031, end: 20071031
  57. HEPARIN SODIUM INJECTION [Suspect]
     Route: 058
     Dates: start: 20071031, end: 20071031
  58. HEPARIN SODIUM INJECTION [Suspect]
     Route: 058
     Dates: start: 20071031, end: 20071031
  59. HEPARIN SODIUM INJECTION [Suspect]
     Route: 058
     Dates: start: 20071031, end: 20071031
  60. HEPARIN SODIUM INJECTION [Suspect]
     Route: 058
     Dates: start: 20071031, end: 20071031
  61. WARFARIN SODIUM [Suspect]
     Indication: PRODUCT USED FOR UNKNOWN INDICATION
     Route: 048
     Dates: start: 20071029, end: 20071107
  62. CALCIUM CITRATE [Concomitant]
     Indication: PRODUCT USED FOR UNKNOWN INDICATION
     Route: 065
  63. STOOL SOFTENER [Concomitant]
     Indication: PRODUCT USED FOR UNKNOWN INDICATION
     Route: 065
  64. QUININE SULFATE [Concomitant]
     Indication: PRODUCT USED FOR UNKNOWN INDICATION
     Route: 065
  65. ASPIRIN [Concomitant]
     Indication: PRODUCT USED FOR UNKNOWN INDICATION
     Route: 065
  66. FISH OIL [Concomitant]
     Indication: PRODUCT USED FOR UNKNOWN INDICATION
     Route: 065
  67. PHOSLO [Concomitant]
     Indication: PRODUCT USED FOR UNKNOWN INDICATION
     Route: 065
  68. CALCITRIOL [Concomitant]
     Indication: PRODUCT USED FOR UNKNOWN INDICATION
     Route: 065
  69. NOVOLOG [Concomitant]
     Indication: PRODUCT USED FOR UNKNOWN INDICATION
     Route: 065
  70. METAMUCIL-2 [Concomitant]
     Indication: PRODUCT USED FOR UNKNOWN INDICATION
     Route: 065
  71. CLONIDINE [Concomitant]
     Indication: PRODUCT USED FOR UNKNOWN INDICATION
     Route: 065
  72. SODIUM BICARBONATE [Concomitant]
     Indication: PRODUCT USED FOR UNKNOWN INDICATION
     Route: 065
  73. IRON SUCROSE [Concomitant]
     Indication: PRODUCT USED FOR UNKNOWN INDICATION
     Route: 065
  74. ARANESP [Concomitant]
     Indication: PRODUCT USED FOR UNKNOWN INDICATION
     Route: 065
  75. LOPRESSOR [Concomitant]
     Indication: PRODUCT USED FOR UNKNOWN INDICATION
     Route: 065
  76. SYNTHROID [Concomitant]
     Indication: PRODUCT USED FOR UNKNOWN INDICATION
     Route: 065
  77. VALSARTAN [Concomitant]
     Indication: PRODUCT USED FOR UNKNOWN INDICATION
     Route: 065
  78. LASIX [Concomitant]
     Indication: PRODUCT USED FOR UNKNOWN INDICATION
     Route: 065
  79. TORSEMIDE [Concomitant]
     Indication: PRODUCT USED FOR UNKNOWN INDICATION
     Route: 065
  80. PANTOPRAZOLE [Concomitant]
     Indication: PRODUCT USED FOR UNKNOWN INDICATION
     Route: 065
  81. PREGABALIN [Concomitant]
     Indication: PRODUCT USED FOR UNKNOWN INDICATION
     Route: 065
  82. ZOLOFT [Concomitant]
     Indication: PRODUCT USED FOR UNKNOWN INDICATION
     Route: 065
  83. VERAPAMIL [Concomitant]
     Indication: PRODUCT USED FOR UNKNOWN INDICATION
     Route: 065
  84. VALTREX [Concomitant]
     Indication: PRODUCT USED FOR UNKNOWN INDICATION
     Route: 065
  85. SENSIPAR [Concomitant]
     Indication: PRODUCT USED FOR UNKNOWN INDICATION
     Route: 065
  86. ALBUTEROL SULFATE [Concomitant]
     Indication: PRODUCT USED FOR UNKNOWN INDICATION
     Route: 065
  87. XANAX [Concomitant]
     Indication: PRODUCT USED FOR UNKNOWN INDICATION
     Route: 065
  88. LORTAB [Concomitant]
     Indication: PRODUCT USED FOR UNKNOWN INDICATION
     Route: 065
  89. ATROVENT [Concomitant]
     Indication: PRODUCT USED FOR UNKNOWN INDICATION
     Route: 065
  90. ZOFRAN [Concomitant]
     Indication: PRODUCT USED FOR UNKNOWN INDICATION
     Route: 065
  91. PROCRIT [Concomitant]
     Indication: PRODUCT USED FOR UNKNOWN INDICATION
     Route: 065
  92. ZOVIRAX [Concomitant]
     Indication: PRODUCT USED FOR UNKNOWN INDICATION
     Route: 065
  93. POTASSIUM CHLORIDE [Concomitant]
     Indication: PRODUCT USED FOR UNKNOWN INDICATION
     Route: 065
  94. RENAGEL [Concomitant]
     Indication: PRODUCT USED FOR UNKNOWN INDICATION
     Route: 065
  95. DIFLUCAN [Concomitant]
     Indication: PRODUCT USED FOR UNKNOWN INDICATION
     Route: 065
  96. IRON [Concomitant]
     Indication: PRODUCT USED FOR UNKNOWN INDICATION
     Route: 065
  97. ATIVAN [Concomitant]
     Indication: PRODUCT USED FOR UNKNOWN INDICATION
     Route: 065

REACTIONS (35)
  - ASTHENIA [None]
  - ATRIAL FIBRILLATION [None]
  - BURNING SENSATION [None]
  - CALCIPHYLAXIS [None]
  - CATHETER SITE HAEMORRHAGE [None]
  - COAGULOPATHY [None]
  - CONVULSION [None]
  - CORONARY ARTERY DISEASE [None]
  - DECREASED APPETITE [None]
  - DIZZINESS [None]
  - ENTEROBACTER INFECTION [None]
  - ENTEROCOCCAL INFECTION [None]
  - FATIGUE [None]
  - FEELING COLD [None]
  - FIBRIN INCREASED [None]
  - HYPERPHOSPHATAEMIA [None]
  - HYPOCALCAEMIA [None]
  - HYPOTENSION [None]
  - INJECTION SITE HAEMORRHAGE [None]
  - ISCHAEMIC HEPATITIS [None]
  - KLEBSIELLA INFECTION [None]
  - MALNUTRITION [None]
  - MUSCLE SPASMS [None]
  - MYOCARDIAL INFARCTION [None]
  - NAUSEA [None]
  - OEDEMA PERIPHERAL [None]
  - PARAESTHESIA [None]
  - PROTEINURIA [None]
  - PULMONARY OEDEMA [None]
  - RESPIRATORY DISTRESS [None]
  - SEPSIS [None]
  - SKIN DISORDER [None]
  - STAPHYLOCOCCAL INFECTION [None]
  - THROMBOCYTOPENIA [None]
  - VENTRICULAR TACHYCARDIA [None]
